FAERS Safety Report 6197084-X (Version None)
Quarter: 2009Q2

REPORT INFORMATION
  Report Type: 
  Country: None (occurrence: None)
  Receive Date: 20090520
  Receipt Date: 20090515
  Transmission Date: 20091009
  Serious: Yes (Other)
  Sender: FDA-Public Use
  Company Number: US-ABBOTT-09P-163-0574376-00

PATIENT
  Age: 86 Year
  Sex: Male

DRUGS (2)
  1. WARFARIN SODIUM [Suspect]
     Indication: ATRIAL FIBRILLATION
     Dosage: NOT REPORTED
  2. HEPARIN [Concomitant]
     Indication: ATRIAL FIBRILLATION
     Dosage: NOT REPORTED

REACTIONS (1)
  - SKIN NECROSIS [None]
